FAERS Safety Report 8328977-2 (Version None)
Quarter: 2012Q2

REPORT INFORMATION
  Report Type: 
  Country: None (occurrence: None)
  Receive Date: 20120502
  Receipt Date: 20120418
  Transmission Date: 20120825
  Serious: Yes (Hospitalization, Other)
  Sender: FDA-Public Use
  Company Number: CN-JNJFOC-20111105219

PATIENT
  Sex: Male

DRUGS (6)
  1. DOXORUBICIN HCL [Suspect]
     Route: 042
  2. CYCLOPHOSPHAMIDE [Suspect]
     Indication: GASTRIC CANCER STAGE III
     Route: 065
  3. DOXORUBICIN HCL [Suspect]
     Indication: GASTRIC CANCER STAGE III
     Route: 042
  4. FLUOROURACIL [Suspect]
     Indication: GASTRIC CANCER STAGE III
     Route: 065
  5. DOXORUBICIN HCL [Suspect]
     Route: 042
     Dates: start: 20111030, end: 20111102
  6. EPIRUBICIN [Suspect]
     Indication: GASTRIC CANCER STAGE III
     Route: 065

REACTIONS (3)
  - RASH ERYTHEMATOUS [None]
  - GASTRIC CANCER [None]
  - OFF LABEL USE [None]
